FAERS Safety Report 19259038 (Version 1)
Quarter: 2021Q2

REPORT INFORMATION
  Report Type: Report from Study
  Country: US (occurrence: US)
  Receive Date: 20210514
  Receipt Date: 20210514
  Transmission Date: 20210717
  Serious: Yes (Death, Hospitalization)
  Sender: FDA-Public Use
  Company Number: US-BAYER-2021-132563

PATIENT
  Age: 81 Year
  Sex: Female
  Weight: 65.76 kg

DRUGS (2)
  1. LETAIRIS [Concomitant]
     Active Substance: AMBRISENTAN
  2. ADEMPAS [Suspect]
     Active Substance: RIOCIGUAT
     Indication: PULMONARY ARTERIAL HYPERTENSION
     Dosage: 0.5 MG, TID
     Route: 048
     Dates: start: 20210218

REACTIONS (4)
  - Death [Fatal]
  - Sleep disorder [None]
  - Pulmonary hypertension [None]
  - Dyspnoea [None]

NARRATIVE: CASE EVENT DATE: 20210419
